FAERS Safety Report 9093718 (Version 1)
Quarter: 2013Q1

REPORT INFORMATION
  Report Type: Spontaneous
  Country: CA (occurrence: CA)
  Receive Date: 20130201
  Receipt Date: 20130201
  Transmission Date: 20140127
  Serious: Yes (Other)
  Sender: FDA-Public Use
  Company Number: CA-AMGEN-CANSP2013006269

PATIENT
  Age: 63 Year
  Sex: Female

DRUGS (3)
  1. ENBREL [Suspect]
     Indication: PSORIATIC ARTHROPATHY
     Dosage: UNK UNK, QWK
     Dates: start: 20120125, end: 201206
  2. METHOTREXATE [Concomitant]
     Dosage: UNK
  3. HUMIRA [Concomitant]
     Dosage: UNK

REACTIONS (6)
  - Hypersomnia [Recovered/Resolved]
  - Sinus congestion [Recovering/Resolving]
  - Respiratory tract congestion [Recovering/Resolving]
  - Drug ineffective [Recovered/Resolved]
  - Nasopharyngitis [Recovering/Resolving]
  - Injection site reaction [Recovered/Resolved]
